FAERS Safety Report 24361373 (Version 1)
Quarter: 2024Q3

REPORT INFORMATION
  Report Type: Spontaneous
  Country: US (occurrence: US)
  Receive Date: 20240925
  Receipt Date: 20240925
  Transmission Date: 20241017
  Serious: No
  Sender: ELI LILLY AND CO
  Company Number: US-ELI_LILLY_AND_COMPANY-US202409009533

PATIENT
  Age: 76 Year
  Sex: Female

DRUGS (1)
  1. BEBTELOVIMAB [Suspect]
     Active Substance: BEBTELOVIMAB
     Indication: Coronavirus infection
     Dosage: 175 MG, SINGLE
     Route: 042
     Dates: start: 202207

REACTIONS (3)
  - Gastrointestinal disorder [Unknown]
  - Asthenia [Unknown]
  - Cognitive disorder [Unknown]
